FAERS Safety Report 24891981 (Version 1)
Quarter: 2025Q1

REPORT INFORMATION
  Report Type: Spontaneous
  Country: CN (occurrence: CN)
  Receive Date: 20250127
  Receipt Date: 20250127
  Transmission Date: 20250408
  Serious: Yes (Hospitalization)
  Sender: ABBVIE
  Company Number: CN-ABBVIE-6100333

PATIENT
  Age: 73 Year
  Sex: Female
  Weight: 50 kg

DRUGS (2)
  1. VENETOCLAX [Suspect]
     Active Substance: VENETOCLAX
     Indication: Acute myeloid leukaemia
     Dosage: 400 MILLIGRAM
     Route: 048
     Dates: start: 20241221, end: 20250116
  2. AZACITIDINE [Suspect]
     Active Substance: AZACITIDINE
     Indication: Acute myeloid leukaemia
     Dosage: 100 MILLIGRAM
     Route: 058
     Dates: start: 20241221, end: 20241227

REACTIONS (5)
  - Myelosuppression [Recovering/Resolving]
  - Fatigue [Recovering/Resolving]
  - Oral pain [Recovering/Resolving]
  - Discomfort [Recovering/Resolving]
  - Ulcer [Unknown]

NARRATIVE: CASE EVENT DATE: 20250116
